FAERS Safety Report 22679147 (Version 3)
Quarter: 2024Q3

REPORT INFORMATION
  Report Type: Report from Study
  Country: JP (occurrence: JP)
  Receive Date: 20230706
  Receipt Date: 20240912
  Transmission Date: 20241016
  Serious: Yes (Death, Other)
  Sender: BRISTOL MYERS SQUIBB
  Company Number: JP-BRISTOL-MYERS SQUIBB COMPANY-2023-094800

PATIENT
  Age: 54 Year
  Sex: Male
  Weight: 84.3 kg

DRUGS (1)
  1. ABECMA [Suspect]
     Active Substance: IDECABTAGENE VICLEUCEL
     Indication: Plasma cell myeloma
     Dosage: 458.71 X 10^6
     Route: 041
     Dates: start: 20230131, end: 20230131

REACTIONS (1)
  - Upper gastrointestinal perforation [Fatal]

NARRATIVE: CASE EVENT DATE: 20230212
